FAERS Safety Report 23549028 (Version 3)
Quarter: 2024Q3

REPORT INFORMATION
  Report Type: Spontaneous
  Country: SE (occurrence: SE)
  Receive Date: 20240221
  Receipt Date: 20240806
  Transmission Date: 20241017
  Serious: Yes (Disabling)
  Sender: PFIZER
  Company Number: None

PATIENT
  Age: 18 Year
  Sex: Male
  Weight: 80 kg

DRUGS (8)
  1. HYDROCORTISONE ACETATE [Suspect]
     Active Substance: HYDROCORTISONE ACETATE
     Indication: Eczema
     Dosage: 1 DF, 2X/DAY
     Route: 003
     Dates: start: 20230501, end: 20230701
  2. PROTOPIC [Suspect]
     Active Substance: TACROLIMUS
     Indication: Eczema
     Dosage: 1 DF, 2X/DAY FOR 14 DAYS
     Route: 003
     Dates: start: 20171101, end: 20201001
  3. ELOCON [Suspect]
     Active Substance: MOMETASONE FUROATE
     Indication: Eczema
     Dosage: 1 DF, 2X/DAY
     Route: 003
     Dates: start: 20230501, end: 20230701
  4. CLOBETASOL [Suspect]
     Active Substance: CLOBETASOL
     Indication: Eczema
     Dosage: 1 DF, 2X/DAY FOR 14 DAYS
     Route: 003
     Dates: start: 20190901, end: 20191231
  5. GLYCERIN [Suspect]
     Active Substance: GLYCERIN
     Indication: Eczema
     Dosage: 1 DF, 2X/DAY
     Route: 003
     Dates: start: 20230501, end: 20230701
  6. LOCOID LIPOCREAM [Suspect]
     Active Substance: HYDROCORTISONE BUTYRATE
     Indication: Eczema
     Dosage: UNK
     Route: 003
     Dates: start: 20160201, end: 20240201
  7. HYDROCORTISONE [Suspect]
     Active Substance: HYDROCORTISONE\HYDROCORTISONE ACETATE
     Indication: Eczema
     Dosage: 1 DF, 2X/DAY
     Route: 003
     Dates: start: 20230501, end: 20230701
  8. BETAMETHASONE [Suspect]
     Active Substance: BETAMETHASONE\BETAMETHASONE DIPROPIONATE
     Indication: Eczema
     Dosage: 1 DF, 2X/DAY FOR 14 DAYS
     Route: 003
     Dates: start: 20140102, end: 20190801

REACTIONS (8)
  - Pruritus [Not Recovered/Not Resolved]
  - Pain [Not Recovered/Not Resolved]
  - Erythema [Not Recovered/Not Resolved]
  - Rash [Not Recovered/Not Resolved]
  - Skin reaction [Not Recovered/Not Resolved]
  - Skin infection [Not Recovered/Not Resolved]
  - Feeling hot [Not Recovered/Not Resolved]
  - Off label use [Unknown]

NARRATIVE: CASE EVENT DATE: 20230501
